FAERS Safety Report 18438514 (Version 1)
Quarter: 2020Q4

REPORT INFORMATION
  Report Type: Report from Study
  Country: HN (occurrence: HN)
  Receive Date: 20201028
  Receipt Date: 20201028
  Transmission Date: 20210114
  Serious: Yes (Other)
  Sender: FDA-Public Use
  Company Number: NVSC2020HN286742

PATIENT
  Age: 91 Year
  Sex: Female

DRUGS (1)
  1. EXFORGE [Suspect]
     Active Substance: AMLODIPINE BESYLATE\VALSARTAN
     Indication: CARDIAC FAILURE
     Dosage: 1 DF
     Route: 065
     Dates: start: 20200928

REACTIONS (3)
  - Gait inability [Unknown]
  - Product use in unapproved indication [Unknown]
  - Osteoarthritis [Unknown]
